FAERS Safety Report 10464182 (Version 1)
Quarter: 2014Q3

REPORT INFORMATION
  Report Type: Report from Study
  Country: US (occurrence: US)
  Receive Date: 20140919
  Receipt Date: 20140919
  Transmission Date: 20150326
  Serious: Yes (Other)
  Sender: FDA-Public Use
  Company Number: US-SA-2014SA127276

PATIENT
  Sex: Female

DRUGS (2)
  1. SOLOSTAR [Suspect]
     Active Substance: DEVICE
     Indication: TYPE 2 DIABETES MELLITUS
  2. LANTUS SOLOSTAR [Suspect]
     Active Substance: INSULIN GLARGINE
     Indication: TYPE 2 DIABETES MELLITUS
     Dosage: 80 U AT BEDTIME AND 55 U IN AM
     Route: 065

REACTIONS (5)
  - Visual impairment [Unknown]
  - Malaise [Recovering/Resolving]
  - Glycosylated haemoglobin increased [Unknown]
  - Drug administration error [Unknown]
  - Eye haemorrhage [Unknown]
